FAERS Safety Report 4970259-0 (Version None)
Quarter: 2006Q2

REPORT INFORMATION
  Report Type: 
  Country: None (occurrence: None)
  Receive Date: 20060412
  Receipt Date: 20060112
  Transmission Date: 20061013
  Serious: Yes (Other)
  Sender: FDA-Public Use
  Company Number: PHBS2006CH00777

PATIENT
  Sex: Male

DRUGS (1)
  1. FORADIL [Suspect]
     Indication: ASTHMA
     Dosage: 2 PUFFS/DAY
     Dates: start: 20051201

REACTIONS (3)
  - ASTHMA [None]
  - DEVICE FAILURE [None]
  - SUFFOCATION FEELING [None]
